FAERS Safety Report 5102912-2 (Version None)
Quarter: 2006Q3

REPORT INFORMATION
  Report Type: 
  Country: None (occurrence: None)
  Receive Date: 20060908
  Receipt Date: 20060830
  Transmission Date: 20061208
  Serious: Yes (Other)
  Sender: FDA-Public Use
  Company Number: 229396

PATIENT
  Age: 53 Year
  Sex: Female

DRUGS (2)
  1. AVASTIN [Suspect]
     Indication: COLORECTAL CANCER
  2. ERLOTINIB (ERLOTONIB) TABLET, 100MG [Suspect]
     Indication: COLORECTAL CANCER
     Dosage: 100 MG, QD, ORAL
     Route: 048

REACTIONS (1)
  - ANXIETY [None]
